FAERS Safety Report 12535196 (Version 1)
Quarter: 2016Q3

REPORT INFORMATION
  Report Type: Spontaneous
  Country: DE (occurrence: DE)
  Receive Date: 20160707
  Receipt Date: 20160707
  Transmission Date: 20161109
  Serious: Yes (Other)
  Sender: FDA-Public Use
  Company Number: DE-AMGEN-DEUSP2016079155

PATIENT
  Age: 86 Year
  Sex: Female
  Weight: 53 kg

DRUGS (2)
  1. VITAMIN D [Concomitant]
     Active Substance: CHOLECALCIFEROL
     Dosage: 20000 UNIT, QWK
  2. PROLIA [Suspect]
     Active Substance: DENOSUMAB
     Indication: OSTEOPOROSIS
     Dosage: 60 MG, Q6MO
     Route: 058
     Dates: start: 20131205

REACTIONS (3)
  - Stress [Not Recovered/Not Resolved]
  - Overdose [Unknown]
  - Amnesia [Unknown]

NARRATIVE: CASE EVENT DATE: 20160614
